FAERS Safety Report 25406068 (Version 1)
Quarter: 2025Q2

REPORT INFORMATION
  Report Type: Spontaneous
  Country: US (occurrence: US)
  Receive Date: 20250606
  Receipt Date: 20250606
  Transmission Date: 20250717
  Serious: No
  Sender: PIERRE FABRE MEDICAMENT
  Company Number: US-PFM-2024-05829

PATIENT
  Sex: Male
  Weight: 12.676 kg

DRUGS (1)
  1. HEMANGEOL [Suspect]
     Active Substance: PROPRANOLOL HYDROCHLORIDE
     Indication: Haemangioma
     Dosage: 3 ML, BID (2/DAY)

REACTIONS (10)
  - Cough [Unknown]
  - Nasal congestion [Unknown]
  - Pyrexia [Unknown]
  - Dyspnoea [Unknown]
  - Irritability [Unknown]
  - Hypersomnia [Unknown]
  - Decreased appetite [Unknown]
  - Somnolence [Unknown]
  - Vomiting [Unknown]
  - Sleep disorder [Unknown]
